FAERS Safety Report 23614169 (Version 3)
Quarter: 2024Q2

REPORT INFORMATION
  Report Type: Report from Study
  Country: US (occurrence: US)
  Receive Date: 20240310
  Receipt Date: 20240401
  Transmission Date: 20240715
  Serious: No
  Sender: FDA-Public Use
  Company Number: US-ABBVIE-5667488

PATIENT
  Age: 57 Year
  Sex: Female

DRUGS (1)
  1. HUMIRA [Suspect]
     Active Substance: ADALIMUMAB
     Indication: Uveitis
     Dosage: FORM STRENGTH: 40 MILLIGRAM, CITRATE FREE
     Route: 058
     Dates: start: 20230519

REACTIONS (10)
  - Concussion [Unknown]
  - Rib fracture [Unknown]
  - Accident [Unknown]
  - Injection site haemorrhage [Unknown]
  - Rash [Recovering/Resolving]
  - Device issue [Recovered/Resolved]
  - Clavicle fracture [Unknown]
  - Hip fracture [Unknown]
  - Noninfective gingivitis [Recovering/Resolving]
  - Fall [Unknown]

NARRATIVE: CASE EVENT DATE: 20240224
